FAERS Safety Report 5764241-3 (Version None)
Quarter: 2008Q2

REPORT INFORMATION
  Report Type: 
  Country: None (occurrence: None)
  Receive Date: 20080610
  Receipt Date: 20080429
  Transmission Date: 20081010
  Serious: Yes (Other)
  Sender: FDA-Public Use
  Company Number: GB-BAXTER-2007BH009951

PATIENT
  Age: 35 Year
  Sex: Female
  Weight: 63 kg

DRUGS (3)
  1. GAMMAGARD LIQUID [Suspect]
     Indication: MULTIFOCAL MOTOR NEUROPATHY
     Route: 042
     Dates: start: 20071213, end: 20071213
  2. GABAPENTIN [Concomitant]
     Indication: NEURALGIA
     Route: 048
  3. DICLOFENAC SODIUM [Concomitant]
     Indication: ANALGESIA
     Route: 048

REACTIONS (4)
  - FLUSHING [None]
  - HYPERSENSITIVITY [None]
  - PALPITATIONS [None]
  - RASH MACULO-PAPULAR [None]
